FAERS Safety Report 10533622 (Version 1)
Quarter: 2014Q4

REPORT INFORMATION
  Report Type: Report from Study
  Country: EG (occurrence: EG)
  Receive Date: 20141022
  Receipt Date: 20141022
  Transmission Date: 20150529
  Serious: Yes (Life-Threatening)
  Sender: FDA-Public Use
  Company Number: EG-SA-2014SA144117

PATIENT
  Age: 62 Year
  Sex: Female
  Weight: 110 kg

DRUGS (2)
  1. LANTUS [Suspect]
     Active Substance: INSULIN GLARGINE
     Indication: DIABETES MELLITUS
     Route: 058
     Dates: start: 20130813
  2. APIDRA [Concomitant]
     Active Substance: INSULIN GLULISINE

REACTIONS (1)
  - Central nervous system inflammation [Not Recovered/Not Resolved]

NARRATIVE: CASE EVENT DATE: 20140401
